FAERS Safety Report 16236476 (Version 4)
Quarter: 2019Q4

REPORT INFORMATION
  Report Type: Report from Study
  Country: None (occurrence: US)
  Receive Date: 20190425
  Receipt Date: 20191022
  Transmission Date: 20200122
  Serious: Yes (Hospitalization, Other)
  Sender: FDA-Public Use
  Company Number: US-INSMED, INC.-US-INS-19-01166

PATIENT
  Sex: Female
  Weight: 81.65 kg

DRUGS (3)
  1. LETROZOLE. [Concomitant]
     Active Substance: LETROZOLE
     Indication: PRODUCT USED FOR UNKNOWN INDICATION
  2. LAMIRA NEBULIZER SYSTEM [Suspect]
     Active Substance: DEVICE
  3. ARIKAYCE [Suspect]
     Active Substance: AMIKACIN
     Indication: MYCOBACTERIAL INFECTION
     Route: 055
     Dates: start: 20190321, end: 2019

REACTIONS (8)
  - Dyspnoea [Recovering/Resolving]
  - Metastases to bone [Unknown]
  - Recurrent cancer [Unknown]
  - Surgery [Unknown]
  - Viral infection [Recovering/Resolving]
  - Secretion discharge [Unknown]
  - Sinus congestion [Unknown]
  - Aphonia [Recovering/Resolving]

NARRATIVE: CASE EVENT DATE: 2019
